FAERS Safety Report 15095898 (Version 1)
Quarter: 2018Q2

REPORT INFORMATION
  Report Type: Spontaneous
  Country: US (occurrence: US)
  Receive Date: 20180608
  Receipt Date: 20180608
  Transmission Date: 20180711
  Serious: Yes (Hospitalization)
  Sender: FDA-Public Use
  Company Number: None

PATIENT
  Age: 71 Year
  Sex: Male
  Weight: 81 kg

DRUGS (3)
  1. LENALIDOMIDE (CC-5013) [Suspect]
     Active Substance: LENALIDOMIDE
     Dates: end: 20180520
  2. VELCADE [Suspect]
     Active Substance: BORTEZOMIB
     Dates: end: 20180205
  3. DEXAMETHASONE. [Suspect]
     Active Substance: DEXAMETHASONE
     Dates: end: 20180206

REACTIONS (6)
  - Dyspnoea [None]
  - Chest pain [None]
  - Dizziness [None]
  - Coronary artery occlusion [None]
  - Myocardial ischaemia [None]
  - Lung hyperinflation [None]

NARRATIVE: CASE EVENT DATE: 20180530
